FAERS Safety Report 7416137-9 (Version None)
Quarter: 2011Q2

REPORT INFORMATION
  Report Type: 
  Country: None (occurrence: None)
  Receive Date: 20110414
  Receipt Date: 20110407
  Transmission Date: 20111010
  Serious: Yes (Hospitalization)
  Sender: FDA-Public Use
  Company Number: NL-MEDIMMUNE-MEDI-0013058

PATIENT
  Sex: Male

DRUGS (2)
  1. SYNAGIS [Suspect]
     Route: 030
     Dates: start: 20110106, end: 20110302
  2. SYNAGIS [Suspect]
     Route: 030
     Dates: start: 20110331

REACTIONS (1)
  - HEART TRANSPLANT [None]
